FAERS Safety Report 12947233 (Version 1)
Quarter: 2016Q4

REPORT INFORMATION
  Report Type: Spontaneous
  Country: US (occurrence: US)
  Receive Date: 20161116
  Receipt Date: 20161116
  Transmission Date: 20170207
  Serious: No
  Sender: FDA-Public Use
  Company Number: None

PATIENT
  Age: 90 Year
  Sex: Female
  Weight: 42.22 kg

DRUGS (4)
  1. ALENDRONATE [Suspect]
     Active Substance: ALENDRONATE SODIUM
     Indication: OSTEOPOROSIS
     Dosage: 12 PILLS ONCE A WEEK MOUTH
     Route: 048
     Dates: start: 20160614, end: 20160707
  2. MULTIVITAMINS [Concomitant]
     Active Substance: VITAMINS
  3. PROPRANALOL [Concomitant]
  4. LEVOTHYROXINE. [Concomitant]
     Active Substance: LEVOTHYROXINE

REACTIONS (2)
  - Pain in extremity [None]
  - Lip swelling [None]

NARRATIVE: CASE EVENT DATE: 20160701
